FAERS Safety Report 21749001 (Version 1)
Quarter: 2022Q4

REPORT INFORMATION
  Report Type: Spontaneous
  Country: US (occurrence: US)
  Receive Date: 20221219
  Receipt Date: 20221219
  Transmission Date: 20230113
  Serious: No
  Sender: FDA-Public Use
  Company Number: US-Calliditas-2022CAL00614

PATIENT
  Age: 42 Year
  Sex: Male

DRUGS (1)
  1. TARPEYO [Suspect]
     Active Substance: BUDESONIDE
     Indication: Haematuria
     Dosage: 16 MG (4 MG CAPSULES) DAILY
     Route: 048
     Dates: start: 20220525

REACTIONS (4)
  - Mental fatigue [Unknown]
  - Alopecia [Unknown]
  - Hypertrichosis [Unknown]
  - Acne [Unknown]
